FAERS Safety Report 17160277 (Version 1)
Quarter: 2019Q4

REPORT INFORMATION
  Report Type: Spontaneous
  Country: US (occurrence: US)
  Receive Date: 20191216
  Receipt Date: 20191216
  Transmission Date: 20200122
  Serious: Yes (Disabling, Other)
  Sender: FDA-Public Use
  Company Number: NVSC2019US047767

PATIENT
  Age: 80 Year
  Sex: Female

DRUGS (9)
  1. LIPITOR [Concomitant]
     Active Substance: ATORVASTATIN CALCIUM
     Indication: HYPERCHOLESTEROLAEMIA
     Dosage: 10 MG, QD
     Route: 048
  2. ACECLOFENAC [Concomitant]
     Active Substance: ACECLOFENAC
     Indication: GASTROOESOPHAGEAL REFLUX DISEASE
     Dosage: QD
     Route: 048
  3. PROBIOTIC [Concomitant]
     Active Substance: PROBIOTICS NOS
     Indication: PROPHYLAXIS
     Dosage: QD
     Route: 048
  4. BEOVU [Suspect]
     Active Substance: BROLUCIZUMAB-DBLL
     Indication: PRODUCT USED FOR UNKNOWN INDICATION
     Dosage: QD
     Route: 031
     Dates: start: 20191118, end: 20191118
  5. BYSTOLIC [Concomitant]
     Active Substance: NEBIVOLOL HYDROCHLORIDE
     Indication: HYPERTENSION
     Dosage: QD
     Route: 048
  6. ALBUTEROL. [Concomitant]
     Active Substance: ALBUTEROL
     Indication: EMPHYSEMA
     Dosage: PRN
     Route: 055
  7. SINGULAIR [Concomitant]
     Active Substance: MONTELUKAST SODIUM
     Indication: EMPHYSEMA
     Dosage: QD
     Route: 048
  8. TRAMADOL. [Concomitant]
     Active Substance: TRAMADOL
     Indication: PAIN
     Dosage: PRN
     Route: 048
  9. BONIVA [Concomitant]
     Active Substance: IBANDRONATE SODIUM
     Indication: OSTEOPOROSIS
     Dosage: QMO
     Route: 048

REACTIONS (5)
  - Vitreous floaters [Unknown]
  - Visual acuity reduced [Unknown]
  - Eye pain [Recovering/Resolving]
  - Vision blurred [Unknown]
  - Endophthalmitis [Recovering/Resolving]

NARRATIVE: CASE EVENT DATE: 20191120
